FAERS Safety Report 15859334 (Version 4)
Quarter: 2020Q1

REPORT INFORMATION
  Report Type: Spontaneous
  Country: US (occurrence: US)
  Receive Date: 20190123
  Receipt Date: 20200225
  Transmission Date: 20200409
  Serious: No
  Sender: FDA-Public Use
  Company Number: US-SA-2019SA014566

PATIENT
  Age: 67 Year
  Sex: Male

DRUGS (4)
  1. ZETIA [Concomitant]
     Active Substance: EZETIMIBE
     Dosage: UNK
  2. ZETIA [Concomitant]
     Active Substance: EZETIMIBE
     Dosage: UNK
  3. PRALUENT [Suspect]
     Active Substance: ALIROCUMAB
     Indication: BLOOD CHOLESTEROL ABNORMAL
     Dosage: 150 MG, Q15D
     Route: 058
     Dates: start: 201807, end: 202002
  4. REPATHA [Concomitant]
     Active Substance: EVOLOCUMAB

REACTIONS (8)
  - Injection site bruising [Unknown]
  - Condition aggravated [Unknown]
  - Muscle spasms [Unknown]
  - Device operational issue [Unknown]
  - Drug hypersensitivity [Unknown]
  - Product dose omission [Unknown]
  - Sleep disorder [Unknown]
  - Injection site pain [Unknown]

NARRATIVE: CASE EVENT DATE: 20190114
